FAERS Safety Report 24017674 (Version 1)
Quarter: 2024Q2

REPORT INFORMATION
  Report Type: Report from Study
  Country: IN (occurrence: None)
  Receive Date: 20240627
  Receipt Date: 20240627
  Transmission Date: 20240715
  Serious: Yes (Death)
  Sender: FDA-Public Use
  Company Number: 2024A146979

PATIENT
  Age: 22990 Day
  Sex: Female

DRUGS (1)
  1. IMFINZI [Suspect]
     Active Substance: DURVALUMAB
     Indication: Chemotherapy
     Route: 040

REACTIONS (1)
  - Gallbladder cancer stage IV [Fatal]

NARRATIVE: CASE EVENT DATE: 20230720
